FAERS Safety Report 19911818 (Version 2)
Quarter: 2021Q4

REPORT INFORMATION
  Report Type: Spontaneous
  Country: US (occurrence: US)
  Receive Date: 20211004
  Receipt Date: 20211027
  Transmission Date: 20220303
  Serious: No
  Sender: FDA-Public Use
  Company Number: US-AJANTA PHARMA USA INC.-2119115

PATIENT
  Age: 66 Year
  Sex: Male

DRUGS (1)
  1. CHOLESTYRAMINE [Suspect]
     Active Substance: CHOLESTYRAMINE
     Indication: Product used for unknown indication

REACTIONS (4)
  - Oesophageal pain [Unknown]
  - Gastrooesophageal reflux disease [Unknown]
  - Product physical consistency issue [Unknown]
  - Product substitution issue [Unknown]
